FAERS Safety Report 9105745 (Version 1)
Quarter: 2013Q1

REPORT INFORMATION
  Report Type: Spontaneous
  Country: JP (occurrence: JP)
  Receive Date: 20130221
  Receipt Date: 20130221
  Transmission Date: 20140127
  Serious: Yes (Life-Threatening, Hospitalization)
  Sender: FDA-Public Use
  Company Number: JP-GLAXOSMITHKLINE-B0864203A

PATIENT
  Age: 40 Year
  Sex: Female

DRUGS (7)
  1. LAMICTAL [Suspect]
     Indication: BIPOLAR II DISORDER
     Dosage: 25MG PER DAY
     Route: 048
     Dates: start: 20120911, end: 201209
  2. LAMICTAL [Suspect]
     Indication: BIPOLAR II DISORDER
     Dosage: 50MG PER DAY
     Route: 048
     Dates: start: 201209, end: 20121013
  3. SEROQUEL [Concomitant]
     Route: 048
     Dates: start: 20100301, end: 20121013
  4. LEXOTAN [Concomitant]
     Route: 048
  5. GOODMIN [Concomitant]
     Dosage: .5MG PER DAY
     Route: 048
  6. MYSLEE [Concomitant]
     Route: 048
  7. QUAZEPAM [Concomitant]
     Route: 048
     Dates: start: 20090220, end: 20121013

REACTIONS (5)
  - Toxic skin eruption [Recovered/Resolved]
  - Drug eruption [Recovering/Resolving]
  - General physical health deterioration [Unknown]
  - Urticaria [Recovered/Resolved]
  - Pruritus [Unknown]
